FAERS Safety Report 14223318 (Version 1)
Quarter: 2017Q4

REPORT INFORMATION
  Report Type: Spontaneous
  Country: FR (occurrence: FR)
  Receive Date: 20171124
  Receipt Date: 20171124
  Transmission Date: 20180321
  Serious: Yes (Other)
  Sender: FDA-Public Use
  Company Number: FR-MERCK KGAA-2035017

PATIENT
  Age: 41 Year
  Sex: Female

DRUGS (1)
  1. NOVOTHYROX [Suspect]
     Active Substance: LEVOTHYROXINE SODIUM
     Indication: PRODUCT USED FOR UNKNOWN INDICATION
     Dates: start: 201704

REACTIONS (20)
  - Weight increased [None]
  - Memory impairment [None]
  - Asocial behaviour [None]
  - Creatinine renal clearance decreased [None]
  - Muscle spasms [None]
  - Alopecia [None]
  - Blood creatinine increased [None]
  - Cardiac disorder [None]
  - Mood altered [None]
  - Irritability [None]
  - Impatience [None]
  - Dyspnoea [None]
  - Somnolence [None]
  - Suicidal ideation [None]
  - Myalgia [None]
  - Fatigue [None]
  - Onychoclasis [None]
  - Disturbance in attention [None]
  - Asthenia [None]
  - Tremor [None]

NARRATIVE: CASE EVENT DATE: 201706
